FAERS Safety Report 15975033 (Version 1)
Quarter: 2019Q1

REPORT INFORMATION
  Report Type: Spontaneous
  Country: US (occurrence: US)
  Receive Date: 20190218
  Receipt Date: 20190218
  Transmission Date: 20190418
  Serious: No
  Sender: FDA-Public Use
  Company Number: US-PFIZER INC-2018535433

PATIENT
  Age: 11 Year
  Sex: Male
  Weight: 24.36 kg

DRUGS (1)
  1. GENOTROPIN [Suspect]
     Active Substance: SOMATROPIN
     Indication: BODY HEIGHT BELOW NORMAL
     Dosage: 1.1 MG, 1X/DAY [AT BEDTIME]
     Route: 058

REACTIONS (1)
  - Headache [Recovered/Resolved]
